FAERS Safety Report 4731184-3 (Version None)
Quarter: 2005Q3

REPORT INFORMATION
  Report Type: 
  Country: None (occurrence: None)
  Receive Date: 20050728
  Receipt Date: 20050622
  Transmission Date: 20060218
  Serious: Yes (Hospitalization)
  Sender: FDA-Public Use
  Company Number: 2005102696

PATIENT
  Sex: Male

DRUGS (1)
  1. ZYRTEC [Suspect]
     Indication: SEASONAL ALLERGY
     Dates: start: 20040501, end: 20040901

REACTIONS (3)
  - ALCOHOL USE [None]
  - GRAND MAL CONVULSION [None]
  - INSOMNIA [None]
